FAERS Safety Report 24728654 (Version 1)
Quarter: 2024Q4

REPORT INFORMATION
  Report Type: Spontaneous
  Country: US (occurrence: US)
  Receive Date: 20241212
  Receipt Date: 20241212
  Transmission Date: 20250115
  Serious: No
  Sender: ADMA BIOLOGICS
  Company Number: ADMA2400110

PATIENT

DRUGS (2)
  1. NABI-HB [Suspect]
     Active Substance: HUMAN HEPATITIS B VIRUS IMMUNE GLOBULIN
     Indication: Product used for unknown indication
     Dosage: 1 DF, SINGLE
     Route: 065
     Dates: start: 202406, end: 202406
  2. NABI-HB [Suspect]
     Active Substance: HUMAN HEPATITIS B VIRUS IMMUNE GLOBULIN
     Dosage: 1 DF, SINGLE
     Route: 065
     Dates: start: 202406, end: 202406

REACTIONS (1)
  - Expired product administered [Unknown]
